FAERS Safety Report 16896364 (Version 2)
Quarter: 2019Q4

REPORT INFORMATION
  Report Type: Spontaneous
  Country: US (occurrence: US)
  Receive Date: 20191008
  Receipt Date: 20191118
  Transmission Date: 20200122
  Serious: Yes (Hospitalization, Other)
  Sender: FDA-Public Use
  Company Number: US-ALEXION PHARMACEUTICALS INC.-A201915359

PATIENT
  Age: 78 Year
  Sex: Male

DRUGS (1)
  1. SOLIRIS [Suspect]
     Active Substance: ECULIZUMAB
     Indication: ATYPICAL HAEMOLYTIC URAEMIC SYNDROME
     Route: 065

REACTIONS (6)
  - Acidosis [Unknown]
  - Acute right ventricular failure [Unknown]
  - Troponin increased [Unknown]
  - Acute myocardial infarction [Unknown]
  - Tachypnoea [Unknown]
  - Dyspnoea [Unknown]
